FAERS Safety Report 22311819 (Version 2)
Quarter: 2023Q2

REPORT INFORMATION
  Report Type: Report from Study
  Country: ES (occurrence: None)
  Receive Date: 20230512
  Receipt Date: 20230517
  Transmission Date: 20230721
  Serious: Yes (Death, Hospitalization)
  Sender: FDA-Public Use
  Company Number: ES-ROCHE-3347418

PATIENT
  Age: 55 Year
  Sex: Male
  Weight: 62.6 kg

DRUGS (2)
  1. ATEZOLIZUMAB [Suspect]
     Active Substance: ATEZOLIZUMAB
     Indication: Metastatic neoplasm
     Route: 041
     Dates: start: 20230227, end: 20230428
  2. METOCLOPRAMIDE [Concomitant]
     Active Substance: METOCLOPRAMIDE

REACTIONS (4)
  - Anaemia [Not Recovered/Not Resolved]
  - Abscess [Not Recovered/Not Resolved]
  - Pulmonary fistula [Not Recovered/Not Resolved]
  - Pulmonary embolism [Fatal]

NARRATIVE: CASE EVENT DATE: 20230428
